FAERS Safety Report 20029000 (Version 1)
Quarter: 2021Q4

REPORT INFORMATION
  Report Type: Spontaneous
  Country: US (occurrence: US)
  Receive Date: 20211103
  Receipt Date: 20211103
  Transmission Date: 20220303
  Serious: No
  Sender: FDA-Public Use
  Company Number: US-RVL_Pharmaceuticals-USA-POI1255202100007

PATIENT
  Age: 80 Year
  Sex: Female
  Weight: 63.560 kg

DRUGS (4)
  1. UPNEEQ [Suspect]
     Active Substance: OXYMETAZOLINE HYDROCHLORIDE
     Indication: Eyelid ptosis
     Dosage: OU
     Route: 047
     Dates: start: 20210927, end: 20210927
  2. LISINOPRIL [Concomitant]
     Active Substance: LISINOPRIL
     Indication: Hypertension
  3. SYNTHROID [Concomitant]
     Active Substance: LEVOTHYROXINE SODIUM
     Indication: Thyroid hormone replacement therapy
  4. DILATING EYE DROPS [Concomitant]
     Indication: Ophthalmological examination
     Route: 047
     Dates: start: 20210927, end: 20210927

REACTIONS (1)
  - Mydriasis [Recovering/Resolving]

NARRATIVE: CASE EVENT DATE: 20210927
